FAERS Safety Report 7107121-3 (Version None)
Quarter: 2010Q4

REPORT INFORMATION
  Report Type: 
  Country: None (occurrence: None)
  Receive Date: 20101116
  Receipt Date: 20101008
  Transmission Date: 20110411
  Serious: No
  Sender: FDA-Public Use
  Company Number: US-ABBOTT-10P-163-0677568-00

PATIENT
  Sex: Female
  Weight: 68.1 kg

DRUGS (4)
  1. SIMCOR [Suspect]
     Indication: BLOOD CHOLESTEROL INCREASED
     Dosage: 500/20MG, 1 DAILY
     Dates: start: 20100901
  2. BYSTOLIC [Concomitant]
     Indication: DIZZINESS
  3. ANTIVERT [Concomitant]
     Indication: VERTIGO
  4. BENADRYL [Concomitant]
     Indication: SEASONAL ALLERGY

REACTIONS (1)
  - FEELING HOT [None]
